FAERS Safety Report 4743368-9 (Version None)
Quarter: 2005Q3

REPORT INFORMATION
  Report Type: 
  Country: None (occurrence: None)
  Receive Date: 20050809
  Receipt Date: 20050725
  Transmission Date: 20060218
  Serious: Yes (Death, Hospitalization)
  Sender: FDA-Public Use
  Company Number: 2005PV000169

PATIENT
  Age: 77 Year
  Sex: Female
  Weight: 100.6985 kg

DRUGS (8)
  1. BYETTA [Suspect]
     Indication: DIABETES MELLITUS NON-INSULIN-DEPENDENT
     Dosage: 5 UG; BID; SC
     Route: 058
     Dates: start: 20050611, end: 20050613
  2. LIPITOR [Concomitant]
  3. COZAAR [Concomitant]
  4. ACTONEL [Concomitant]
  5. LASIX [Concomitant]
  6. TOPRAL [Concomitant]
  7. CALTRATE [Concomitant]
  8. GLIPIZIDE [Concomitant]

REACTIONS (4)
  - ACUTE MYELOID LEUKAEMIA [None]
  - HAEMORRHAGE [None]
  - INTESTINAL INFARCTION [None]
  - STOMACH DISCOMFORT [None]
